FAERS Safety Report 5844399-8 (Version None)
Quarter: 2008Q3

REPORT INFORMATION
  Report Type: 
  Country: None (occurrence: None)
  Receive Date: 20080813
  Receipt Date: 20080804
  Transmission Date: 20090109
  Serious: Yes (Hospitalization, Disabling, Other)
  Sender: FDA-Public Use
  Company Number: US-MERCK-0805USA03761

PATIENT
  Sex: Female

DRUGS (1)
  1. FOSAMAX [Suspect]
     Route: 048
     Dates: start: 20000101

REACTIONS (6)
  - CEREBROVASCULAR ACCIDENT [None]
  - JAW DISORDER [None]
  - LOOSE TOOTH [None]
  - MASTICATION DISORDER [None]
  - OSTEONECROSIS [None]
  - RESORPTION BONE INCREASED [None]
